FAERS Safety Report 4631586-X (Version None)
Quarter: 2005Q2

REPORT INFORMATION
  Report Type: 
  Country: None (occurrence: None)
  Receive Date: 20050407
  Receipt Date: 20050308
  Transmission Date: 20051028
  Serious: No
  Sender: FDA-Public Use
  Company Number: 200510067BYL

PATIENT
  Age: 61 Year
  Sex: Male
  Weight: 61 kg

DRUGS (6)
  1. ADALAT [Suspect]
     Indication: HYPERTENSION
     Dosage: 40 MG, QD, ORAL
     Route: 048
     Dates: start: 20050111, end: 20050208
  2. CONIEL [Concomitant]
  3. PLETAL [Concomitant]
  4. BASEN [Concomitant]
  5. MICARDIS [Concomitant]
  6. LANTUS [Concomitant]

REACTIONS (4)
  - OEDEMA [None]
  - OEDEMA PERIPHERAL [None]
  - PALPITATIONS [None]
  - PROTEINURIA [None]
